FAERS Safety Report 25124628 (Version 1)
Quarter: 2025Q1

REPORT INFORMATION
  Report Type: Spontaneous
  Country: US (occurrence: None)
  Receive Date: 20250325
  Receipt Date: 20250325
  Transmission Date: 20250409
  Serious: Yes (Hospitalization, Disabling)
  Sender: FDA-CTU
  Company Number: None

PATIENT
  Age: 71 Year
  Sex: Male
  Weight: 57.6 kg

DRUGS (16)
  1. JARDIANCE [Suspect]
     Active Substance: EMPAGLIFLOZIN
     Indication: Diabetes mellitus
     Route: 048
     Dates: start: 20250221, end: 20250221
  2. JARDIANCE [Suspect]
     Active Substance: EMPAGLIFLOZIN
     Indication: Cardiac disorder
  3. DEVICE [Concomitant]
     Active Substance: DEVICE
  4. MYCOPHENOLATE 500MG 2 TABLETS A DAY [Concomitant]
  5. URINARY CONTROL SYSTEM IMPLANT [Concomitant]
  6. ALLIROCUMAB INJECTION [Concomitant]
  7. AMLODIPINE 10MG ONCE A DAY [Concomitant]
  8. APIXAN 50MG TWICE A DAY [Concomitant]
  9. EZETIMIBE 10MG EVERY MORNING [Concomitant]
  10. 8 UNITS OF INSUL GLARGINE IN THE ECENING [Concomitant]
  11. ISOSORBIDE 120MG EVERY MORNING [Concomitant]
  12. LISINOPRIL 40MG EVERY EVENING [Concomitant]
  13. METFORMIN 500mg 2 tablets twice a day [Concomitant]
  14. SPIRONOLACTONE 25 2 TABLETS IN THE MORNING [Concomitant]
  15. MARIJUANA EDIBLES IN THE EVENING [Concomitant]
  16. NATURAL FOOD SPECIALIST [Concomitant]

REACTIONS (6)
  - Dyspnoea [None]
  - Hyperhidrosis [None]
  - Diplegia [None]
  - Monoplegia [None]
  - Facial paralysis [None]
  - Haemorrhage [None]

NARRATIVE: CASE EVENT DATE: 20250221
